FAERS Safety Report 8221916-4 (Version None)
Quarter: 2012Q1

REPORT INFORMATION
  Report Type: 
  Country: None (occurrence: None)
  Receive Date: 20120320
  Receipt Date: 20120308
  Transmission Date: 20120608
  Serious: Yes (Hospitalization)
  Sender: FDA-Public Use
  Company Number: US-JNJFOC-20120306034

PATIENT
  Sex: Male
  Weight: 32.7 kg

DRUGS (20)
  1. DESONIDE [Concomitant]
  2. AMOXICILLIN [Concomitant]
  3. ACETAMINOPHEN W/ CODEINE TAB [Concomitant]
  4. MESALAMINE [Concomitant]
     Indication: INFLAMMATORY BOWEL DISEASE
     Route: 048
  5. BUDESONIDE [Concomitant]
     Indication: INFLAMMATORY BOWEL DISEASE
  6. NEUPOGEN [Concomitant]
  7. METHOTREXATE [Concomitant]
     Indication: INFLAMMATORY BOWEL DISEASE
  8. PRILOSEC [Concomitant]
  9. FISH OIL [Concomitant]
  10. LIDOCAINE/PRILOCAINE [Concomitant]
  11. REMICADE [Suspect]
     Indication: INFLAMMATORY BOWEL DISEASE
     Route: 042
     Dates: start: 20100207, end: 20100319
  12. ELAVIL [Concomitant]
  13. CARAFATE [Concomitant]
  14. ZOFRAN [Concomitant]
  15. ANTIBIOTICS [Concomitant]
     Indication: INFLAMMATORY BOWEL DISEASE
  16. RIFAXIMIN [Concomitant]
  17. MAXALT [Concomitant]
  18. PERIACTIN [Concomitant]
  19. PROBIOTICS [Concomitant]
     Indication: INFLAMMATORY BOWEL DISEASE
  20. ZINC SULFATE [Concomitant]

REACTIONS (2)
  - ILEAL STENOSIS [None]
  - ILEUS [None]
